FAERS Safety Report 20702893 (Version 8)
Quarter: 2022Q3

REPORT INFORMATION
  Report Type: Spontaneous
  Country: US (occurrence: US)
  Receive Date: 20220412
  Receipt Date: 20220707
  Transmission Date: 20221027
  Serious: No
  Sender: FDA-Public Use
  Company Number: US-BIOGEN-2022BI01112086

PATIENT
  Age: 42 Year
  Sex: Male

DRUGS (5)
  1. SPINRAZA [Suspect]
     Active Substance: NUSINERSEN
     Indication: Product used for unknown indication
     Route: 050
  2. SPINRAZA [Suspect]
     Active Substance: NUSINERSEN
     Dosage: DOSE AND FREQUENCY: THREE LOADING DOSES (12MG/5ML EACH) AT 14 DAY INTERVALS. THE 4TH LOADING DOSE...
     Route: 050
     Dates: start: 20220401
  3. SPINRAZA [Suspect]
     Active Substance: NUSINERSEN
     Route: 050
     Dates: start: 20220104
  4. IBUPROFEN [Concomitant]
     Active Substance: IBUPROFEN
     Indication: Product used for unknown indication
     Route: 050
  5. FIORICET [Concomitant]
     Active Substance: ACETAMINOPHEN\BUTALBITAL\CAFFEINE
     Indication: Product used for unknown indication
     Route: 050

REACTIONS (7)
  - Procedural pain [Unknown]
  - Fatigue [Unknown]
  - Neck pain [Unknown]
  - Hypoacusis [Unknown]
  - Nausea [Unknown]
  - Procedural dizziness [Unknown]
  - Post lumbar puncture syndrome [Recovered/Resolved]

NARRATIVE: CASE EVENT DATE: 20220401
